FAERS Safety Report 18650137 (Version 2)
Quarter: 2020Q4

REPORT INFORMATION
  Report Type: Spontaneous
  Country: US (occurrence: US)
  Receive Date: 20201222
  Receipt Date: 20201224
  Transmission Date: 20210114
  Serious: Yes (Other)
  Sender: FDA-Public Use
  Company Number: US-SANOFI-AVENTIS-2011SA066597

PATIENT

DRUGS (2)
  1. LANTUS SOLOSTAR [Suspect]
     Active Substance: INSULIN GLARGINE
     Dosage: 20 IU, QD (AT NIGHT)
     Route: 065
     Dates: start: 20201215
  2. LANTUS SOLOSTAR [Suspect]
     Active Substance: INSULIN GLARGINE
     Indication: TYPE 2 DIABETES MELLITUS
     Dosage: 9 IU, QD
     Route: 058
     Dates: start: 2011

REACTIONS (8)
  - Drug ineffective [Unknown]
  - Sinus disorder [Not Recovered/Not Resolved]
  - Mental impairment [Unknown]
  - Cough [Not Recovered/Not Resolved]
  - COVID-19 [Unknown]
  - Blood glucose increased [Unknown]
  - Condition aggravated [Not Recovered/Not Resolved]
  - Pulmonary congestion [Recovering/Resolving]

NARRATIVE: CASE EVENT DATE: 2011
